FAERS Safety Report 16748171 (Version 1)
Quarter: 2019Q3

REPORT INFORMATION
  Report Type: Report from Study
  Country: US (occurrence: US)
  Receive Date: 20190827
  Receipt Date: 20190827
  Transmission Date: 20191005
  Serious: Yes (Other)
  Sender: FDA-Public Use
  Company Number: US-NOVOPROD-680575

PATIENT
  Age: 17 Year
  Sex: Female

DRUGS (2)
  1. NORDITROPIN [Suspect]
     Active Substance: SOMATROPIN
     Indication: GROWTH HORMONE DEFICIENCY
     Dosage: 2.4 MG
     Route: 058
     Dates: start: 201903
  2. NORDITROPIN [Suspect]
     Active Substance: SOMATROPIN
     Dosage: 2.7 MG
     Route: 058

REACTIONS (4)
  - Immunodeficiency [Unknown]
  - Insulin-like growth factor decreased [Not Recovered/Not Resolved]
  - Inhibiting antibodies [Unknown]
  - Condition aggravated [Not Recovered/Not Resolved]

NARRATIVE: CASE EVENT DATE: 2019
